FAERS Safety Report 7124582-4 (Version None)
Quarter: 2010Q4

REPORT INFORMATION
  Report Type: 
  Country: None (occurrence: None)
  Receive Date: 20101123
  Receipt Date: 20101123
  Transmission Date: 20110411
  Serious: Yes (Death)
  Sender: FDA-Public Use
  Company Number: None

PATIENT
  Age: 75 Year
  Sex: Female
  Weight: 69.4003 kg

DRUGS (9)
  1. WINRHO [Suspect]
     Indication: IDIOPATHIC THROMBOCYTOPENIC PURPURA
     Dosage: 9000 UNITS ONCE IV BOLUS
     Route: 040
     Dates: start: 20100805, end: 20100805
  2. INSULIN [Concomitant]
  3. PANTOPRAZOLE [Concomitant]
  4. ZINC OXIDE [Concomitant]
  5. EPOETIN [Concomitant]
  6. PREDNISONE [Concomitant]
  7. POLYMYCIN B SULFATE [Concomitant]
  8. SODIUM CHLORIDE [Concomitant]
  9. VANCOMYCIN [Concomitant]

REACTIONS (2)
  - HAEMOGLOBIN DECREASED [None]
  - OCCULT BLOOD POSITIVE [None]
